FAERS Safety Report 8265429 (Version 4)
Quarter: 2018Q4

REPORT INFORMATION
  Report Type: Report from Study
  Country: US (occurrence: US)
  Receive Date: 20111128
  Receipt Date: 20181122
  Transmission Date: 20190205
  Serious: Yes (Death, Hospitalization, Other)
  Sender: FDA-Public Use
  Company Number: US-TEVA-310507USA

PATIENT
  Age: 50 Year
  Sex: Female

DRUGS (4)
  1. INSULIN [Interacting]
     Active Substance: INSULIN NOS
     Route: 065
  2. BUPROPION. [Suspect]
     Active Substance: BUPROPION
     Route: 048
  3. METOPROLOL. [Suspect]
     Active Substance: METOPROLOL
     Route: 048
  4. FENOFIBRATE. [Concomitant]
     Active Substance: FENOFIBRATE

REACTIONS (8)
  - Cardiogenic shock [Fatal]
  - Seizure [Unknown]
  - Drug interaction [Unknown]
  - Cardiac arrest [Fatal]
  - Toxicity to various agents [Fatal]
  - Overdose [Fatal]
  - Suicide attempt [Fatal]
  - Multiple organ dysfunction syndrome [Fatal]

NARRATIVE: CASE EVENT DATE: 2010
